FAERS Safety Report 5889544-3 (Version None)
Quarter: 2008Q3

REPORT INFORMATION
  Report Type: 
  Country: None (occurrence: None)
  Receive Date: 20080919
  Receipt Date: 20080912
  Transmission Date: 20090109
  Serious: Yes (Hospitalization)
  Sender: FDA-Public Use
  Company Number: A0729672A

PATIENT
  Age: 57 Year
  Sex: Female
  Weight: 88.2 kg

DRUGS (7)
  1. AVANDIA [Suspect]
     Dosage: 4MG PER DAY
     Route: 048
     Dates: start: 20050107, end: 20050120
  2. METFORMIN HCL [Concomitant]
     Dosage: 850MG THREE TIMES PER DAY
     Dates: start: 20020101
  3. LIPITOR [Concomitant]
     Dates: start: 19960101, end: 20080101
  4. ESTER C [Concomitant]
  5. VITAMIN E [Concomitant]
  6. MULTI-VITAMIN [Concomitant]
  7. LASIX [Concomitant]

REACTIONS (2)
  - CARDIAC FAILURE CONGESTIVE [None]
  - PULMONARY HYPERTENSION [None]
